FAERS Safety Report 9098496 (Version 1)
Quarter: 2013Q1

REPORT INFORMATION
  Report Type: Spontaneous
  Country: US (occurrence: US)
  Receive Date: 20130213
  Receipt Date: 20130213
  Transmission Date: 20140127
  Serious: Yes (Death, Hospitalization)
  Sender: FDA-Public Use
  Company Number: US-WATSON-2013-01965

PATIENT
  Sex: Male

DRUGS (1)
  1. METHYLPREDNISOLONE ACETATE [Suspect]
     Indication: BACK PAIN
     Dosage: UNK, UNKNOWN
     Route: 008

REACTIONS (3)
  - Meningitis fungal [Fatal]
  - Aspergillus infection [Fatal]
  - Transmission of an infectious agent via product [Fatal]
